FAERS Safety Report 4884001-5 (Version None)
Quarter: 2006Q1

REPORT INFORMATION
  Report Type: 
  Country: None (occurrence: None)
  Receive Date: 20060117
  Receipt Date: 20060104
  Transmission Date: 20060701
  Serious: Yes (Other)
  Sender: FDA-Public Use
  Company Number: HQWYE194105JAN06

PATIENT
  Age: 54 Year
  Sex: Female
  Weight: 41.31 kg

DRUGS (4)
  1. PREMPRO [Suspect]
     Indication: HORMONE REPLACEMENT THERAPY
     Dosage: ONE TABLET DAILY FOR SEVEN DAYS AND THEN REDUCED TO ONE TABLET EVERY FOUR DAYS, ORAL
     Route: 048
     Dates: start: 20050701, end: 20051001
  2. PREMPRO [Suspect]
     Indication: HORMONE REPLACEMENT THERAPY
     Dosage: ONE TABLET DAILY FOR SEVEN DAYS AND THEN REDUCED TO ONE TABLET EVERY FOUR DAYS, ORAL
     Route: 048
     Dates: start: 20051201
  3. LEVOTHYROXINE SODIUM [Suspect]
     Indication: HYPOTHYROIDISM
     Dosage: 88 MCG DAILY, ORAL
     Route: 048
  4. FOSAMAX [Concomitant]

REACTIONS (3)
  - ANTIBODY TEST ABNORMAL [None]
  - DRUG INTERACTION [None]
  - WEIGHT INCREASED [None]
